FAERS Safety Report 8802975 (Version 1)
Quarter: 2012Q4

REPORT INFORMATION
  Report Type: Report from Study
  Country: US (occurrence: US)
  Receive Date: 20120924
  Receipt Date: 20120924
  Transmission Date: 20130627
  Serious: Yes (Hospitalization)
  Sender: FDA-Public Use
  Company Number: US-ABBOTT-12P-163-0973214-00

PATIENT
  Sex: Female
  Weight: 96.25 kg

DRUGS (17)
  1. HUMIRA 40 MG/ 0.8 ML PRE-FILLED SYRINGE [Suspect]
     Indication: RHEUMATOID ARTHRITIS
     Route: 058
     Dates: start: 2002, end: 2011
  2. HUMIRA 40 MG/ 0.8 ML PRE-FILLED SYRINGE [Suspect]
     Route: 058
     Dates: start: 2011
  3. RECLAST [Suspect]
     Indication: BONE DISORDER
  4. GLUCOTROL [Concomitant]
     Indication: DIABETES MELLITUS
  5. METFORMIN [Concomitant]
     Indication: DIABETES MELLITUS
  6. LOPID [Concomitant]
     Indication: BLOOD TRIGLYCERIDES INCREASED
  7. NEXIUM [Concomitant]
     Indication: GASTROOESOPHAGEAL REFLUX DISEASE
  8. FLEXARIL [Concomitant]
     Indication: PRODUCT USED FOR UNKNOWN INDICATION
  9. ARRAVA [Concomitant]
     Indication: PRODUCT USED FOR UNKNOWN INDICATION
  10. VIT D [Concomitant]
     Indication: PRODUCT USED FOR UNKNOWN INDICATION
  11. ASA [Concomitant]
     Indication: PRODUCT USED FOR UNKNOWN INDICATION
  12. VESICARE [Concomitant]
     Indication: URINARY INCONTINENCE
  13. METOPROLOL [Concomitant]
     Indication: HYPERTENSION
  14. AMIOPSRONE [Concomitant]
     Indication: HEART RATE IRREGULAR
  15. COUMADIN [Concomitant]
     Indication: PRODUCT USED FOR UNKNOWN INDICATION
     Dosage: 2.5-5 mg
  16. TRAMADOL [Concomitant]
     Indication: ARTHRALGIA
  17. LORTAB [Concomitant]
     Indication: PRODUCT USED FOR UNKNOWN INDICATION
     Dosage: 10/500

REACTIONS (2)
  - Atrial fibrillation [Unknown]
  - Diabetes mellitus [Unknown]
